FAERS Safety Report 8825338 (Version 2)
Quarter: 2013Q1

REPORT INFORMATION
  Report Type: Spontaneous
  Country: US (occurrence: US)
  Receive Date: 20121004
  Receipt Date: 20130121
  Transmission Date: 20140127
  Serious: No
  Sender: FDA-Public Use
  Company Number: US-009507513-1210USA002010

PATIENT
  Age: 83 Year
  Sex: Male
  Weight: 54.42 kg

DRUGS (7)
  1. MIRALAX [Suspect]
     Indication: LAXATIVE SUPPORTIVE CARE
     Dosage: 17 G, QD
     Route: 048
     Dates: start: 20120910, end: 20120914
  2. MIRALAX [Suspect]
     Indication: MEDICAL OBSERVATION
  3. METAMUCIL [Concomitant]
     Indication: GASTROINTESTINAL DISORDER
     Dosage: UNK, UNKNOWN
  4. OMEPRAZOLE [Concomitant]
     Indication: PRODUCT USED FOR UNKNOWN INDICATION
     Dosage: UNK, UNKNOWN
  5. SIMVASTATIN [Concomitant]
     Indication: PRODUCT USED FOR UNKNOWN INDICATION
     Dosage: UNK, UNKNOWN
  6. ZOLPID [Concomitant]
     Indication: PRODUCT USED FOR UNKNOWN INDICATION
     Dosage: UNK, UNKNOWN
  7. VITAMIN D (UNSPECIFIED) [Concomitant]
     Indication: PRODUCT USED FOR UNKNOWN INDICATION
     Dosage: UNK, UNKNOWN

REACTIONS (1)
  - Drug ineffective [Unknown]
